FAERS Safety Report 25733053 (Version 2)
Quarter: 2025Q4

REPORT INFORMATION
  Report Type: Spontaneous
  Country: GB (occurrence: None)
  Receive Date: 20250828
  Receipt Date: 20251008
  Transmission Date: 20260118
  Serious: Yes (Hospitalization, Disabling, Other)
  Sender: ENDO
  Company Number: GB-ENDO USA, INC.-2025-001834

PATIENT
  Age: 44 Year
  Sex: Male
  Weight: 100 kg

DRUGS (1)
  1. AVEED [Suspect]
     Active Substance: TESTOSTERONE UNDECANOATE
     Indication: Erectile dysfunction
     Dosage: 1000 MILLIGRAM, UNKNOWN
     Route: 065

REACTIONS (5)
  - Atrial fibrillation [Not Recovered/Not Resolved]
  - Silent sinus syndrome [Unknown]
  - Snoring [Recovered/Resolved with Sequelae]
  - Sinusitis [Not Recovered/Not Resolved]
  - Nasal discomfort [Unknown]

NARRATIVE: CASE EVENT DATE: 20190101
